FAERS Safety Report 11233034 (Version 2)
Quarter: 2015Q3

REPORT INFORMATION
  Report Type: Spontaneous
  Country: US (occurrence: US)
  Receive Date: 20150701
  Receipt Date: 20150721
  Transmission Date: 20151125
  Serious: No
  Sender: FDA-Public Use
  Company Number: ALCN2015US004079

PATIENT
  Age: 69 Year
  Sex: Female

DRUGS (1)
  1. SYSTANE ULTRA [Suspect]
     Active Substance: POLYETHYLENE GLYCOL 400\PROPYLENE GLYCOL
     Indication: DRY EYE
     Dosage: 1 GTT, QID
     Route: 047

REACTIONS (2)
  - Abnormal sensation in eye [Recovered/Resolved]
  - Eyelid margin crusting [Recovered/Resolved]
